FAERS Safety Report 25970973 (Version 1)
Quarter: 2025Q4

REPORT INFORMATION
  Report Type: Spontaneous
  Country: US (occurrence: US)
  Receive Date: 20251028
  Receipt Date: 20251028
  Transmission Date: 20260119
  Serious: No
  Sender: PFIZER
  Company Number: US-PFIZER INC-202500211879

PATIENT
  Age: 40 Year
  Sex: Male

DRUGS (1)
  1. VELSIPITY [Suspect]
     Active Substance: ETRASIMOD ARGININE
     Dosage: UNK

REACTIONS (5)
  - Panic attack [Unknown]
  - Dyspnoea [Unknown]
  - Asthma [Unknown]
  - Headache [Unknown]
  - Weight decreased [Unknown]
